FAERS Safety Report 9019657 (Version 1)
Quarter: 2013Q1

REPORT INFORMATION
  Report Type: Spontaneous
  Country: US (occurrence: US)
  Receive Date: 20130118
  Receipt Date: 20130118
  Transmission Date: 20140127
  Serious: Yes (Other)
  Sender: FDA-Public Use
  Company Number: US-PFIZER INC-2013022360

PATIENT
  Age: 48 Year
  Sex: 0

DRUGS (12)
  1. NEURONTIN [Suspect]
     Dosage: 600MG, 3X/DAY
     Route: 048
  2. ACCURETIC [Suspect]
     Dosage: 20MG/25 MG TABLET, 1X/DAY
     Route: 048
  3. SPIRIVA [Suspect]
     Dosage: 18 UG, DAILY
     Route: 055
  4. SYMBICORT [Concomitant]
     Dosage: 160-4.5 MCG, 2 PUFFS IN TO THE LUNGS, 2X/DAY
     Route: 055
  5. VITAMIN D3 [Concomitant]
     Dosage: 5000 IU, DAILY
     Route: 048
  6. FLEXERIL [Concomitant]
     Indication: MUSCLE SPASMS
     Dosage: 10 MG, 2X/DAY AS NEEDED
     Route: 048
  7. TRICOR [Concomitant]
     Dosage: 48 MG, DAILY
     Route: 048
  8. ADVIL [Concomitant]
     Dosage: 800 MG, 2X/DAY AS NEEDED
     Route: 048
  9. GLUCOPHAGE [Concomitant]
     Dosage: 1000 MG, 2X/DAY WITH MEALS
     Route: 048
  10. LOVAZA [Concomitant]
     Dosage: 2 G, DAILY
     Route: 048
  11. CRESTOR [Concomitant]
     Dosage: 10 MG, EVERY EVENING
     Route: 048
  12. PROVENTIL HFA [Concomitant]
     Dosage: 90 MCG, 2 PUFFS INTO THE LUNGS EVERY 6 HOURS, AS NEEDED
     Route: 055

REACTIONS (9)
  - Type 2 diabetes mellitus [Unknown]
  - Bipolar I disorder [Unknown]
  - Essential hypertension [Unknown]
  - Chronic obstructive pulmonary disease [Unknown]
  - Neuropathy peripheral [Unknown]
  - Anxiety disorder [Unknown]
  - Muscle spasms [Unknown]
  - Blood cholesterol increased [Unknown]
  - Headache [Unknown]
